FAERS Safety Report 8776289 (Version 1)
Quarter: 2012Q4

REPORT INFORMATION
  Report Type: 
  Country: US (occurrence: US)
  Receive Date: 20120910
  Receipt Date: 20120910
  Transmission Date: 20130627
  Serious: No
  Sender: FDA-Public Use
  Company Number: US-PFIZER INC-2012221494

PATIENT
  Age: 40 Year
  Sex: Female
  Weight: 136 kg

DRUGS (1)
  1. LYRICA [Suspect]
     Indication: FIBROMYALGIA
     Dosage: 200 mg, 2x/day

REACTIONS (1)
  - Vision blurred [Not Recovered/Not Resolved]
